FAERS Safety Report 12549995 (Version 3)
Quarter: 2020Q4

REPORT INFORMATION
  Report Type: Spontaneous
  Country: IT (occurrence: IT)
  Receive Date: 20160712
  Receipt Date: 20201016
  Transmission Date: 20210113
  Serious: Yes (Other)
  Sender: FDA-Public Use
  Company Number: IT-TEVA-674188ACC

PATIENT
  Age: 80 Year
  Sex: Male
  Weight: 89 kg

DRUGS (8)
  1. DECADRON - 8 MG/2 ML SOLUZIONE INIETTABILE - I.B.N. SAVIO S.R.L. [Concomitant]
     Indication: ANTIEMETIC SUPPORTIVE CARE
     Dosage: 8 MG
     Route: 041
     Dates: start: 20150701, end: 20150930
  2. CALCIO LEVOFOLINATO TEVA - 100 MG POLVERE PER SOLUZIONE PER INFUSIONE [Suspect]
     Active Substance: LEVOLEUCOVORIN CALCIUM
     Indication: COLON CANCER
     Dosage: 315 MG/KG CYCLICAL
     Route: 041
     Dates: start: 20150701, end: 20150930
  3. ATROPINA SOLFATO MONICO - 1 MG/ML SOLUZIONE INIETTABILE - MONICO S.P.A [Concomitant]
     Indication: ANTIEMETIC SUPPORTIVE CARE
     Dosage: 1 MG
     Route: 055
     Dates: start: 20150701, end: 20150930
  4. FLUOROURACILE AHCL - 50MG/ML SOLUZIONE INIETTABILE O INFUSIONE [Suspect]
     Active Substance: FLUOROURACIL
     Indication: COLON CANCER
     Dosage: 630 MG/M2 CYCLICAL
     Route: 042
     Dates: start: 20150701, end: 20150930
  5. ALOXI - 250 MCG SOLUZIONE INIETTABILE?- HELSINN BIREX PHARMACEUTICALS [Concomitant]
     Indication: ANTIEMETIC SUPPORTIVE CARE
     Dosage: 250 UG
     Route: 041
     Dates: start: 20150701, end: 20150930
  6. FOSINOPRIL [Concomitant]
     Active Substance: FOSINOPRIL
     Indication: HYPERTENSION
     Route: 048
     Dates: start: 20150701, end: 20150930
  7. IRINOTECAN KABI - 20 MG/ML CONCENTRATO PER SOLUZIONE PER INFUSIONE [Suspect]
     Active Substance: IRINOTECAN
     Indication: COLON CANCER
     Dosage: 300 MG/M2 CYCLICAL
     Route: 041
     Dates: start: 20150701, end: 20150930
  8. ZALTRAP [Suspect]
     Active Substance: ZIV-AFLIBERCEPT
     Indication: COLON CANCER
     Dosage: 344 MG/KG CYCLICAL
     Route: 041
     Dates: start: 20150701, end: 20150930

REACTIONS (5)
  - Cystitis klebsiella [Recovered/Resolved]
  - Asthenia [Recovered/Resolved]
  - Palmar-plantar erythrodysaesthesia syndrome [Recovered/Resolved]
  - Proteinuria [Unknown]
  - Rectal haemorrhage [Recovered/Resolved]

NARRATIVE: CASE EVENT DATE: 20150902
